FAERS Safety Report 7016057-8 (Version None)
Quarter: 2010Q3

REPORT INFORMATION
  Report Type: 
  Country: None (occurrence: None)
  Receive Date: 20100927
  Receipt Date: 20100922
  Transmission Date: 20110219
  Serious: Yes (Hospitalization, Other)
  Sender: FDA-Public Use
  Company Number: US-ROXANE LABORATORIES, INC.-2010-RO-01261RO

PATIENT
  Age: 55 Year
  Sex: Male

DRUGS (4)
  1. FLUTICASONE PROPIONATE [Suspect]
     Indication: NASAL CONGESTION
     Route: 045
  2. PHENYTOIN [Suspect]
     Indication: CONVULSION
  3. PHENOBARBITAL [Suspect]
     Indication: CONVULSION
  4. NASAL SPRAY [Concomitant]
     Indication: SEASONAL ALLERGY

REACTIONS (2)
  - ADRENOCORTICAL INSUFFICIENCY ACUTE [None]
  - INTENTIONAL DRUG MISUSE [None]
